FAERS Safety Report 4286323-8 (Version None)
Quarter: 2004Q1

REPORT INFORMATION
  Report Type: 
  Country: None (occurrence: None)
  Receive Date: 20040121
  Receipt Date: 20030306
  Transmission Date: 20041129
  Serious: Yes (Other)
  Sender: FDA-Public Use
  Company Number: A03200300476

PATIENT
  Age: 59 Year
  Sex: Male
  Weight: 104.3273 kg

DRUGS (10)
  1. PLAVIX [Suspect]
     Indication: CEREBROVASCULAR ACCIDENT
     Dosage: 75 MG QD - ORAL
     Route: 048
     Dates: start: 20011012, end: 20011030
  2. PLAVIX [Suspect]
     Indication: CEREBROVASCULAR ACCIDENT
     Dosage: 75 MG QD - ORAL
     Route: 048
     Dates: start: 20011101
  3. INSULIN [Concomitant]
  4. METFORMIN/GLYBURIDE [Concomitant]
  5. ACETYLSALICYLIC ACID SRT [Concomitant]
  6. AMLODIPINE/BENAZEPRIL [Concomitant]
  7. ATORVASTATIN [Concomitant]
  8. DORZAMIDE/TIMDOL [Concomitant]
  9. VITAMIN B6, B12, FOLIC ACID [Concomitant]
  10. ROSIGLITAZONE MALEATE [Concomitant]

REACTIONS (4)
  - FATIGUE [None]
  - HEADACHE [None]
  - RETINAL HAEMORRHAGE [None]
  - RETINAL VEIN OCCLUSION [None]
